FAERS Safety Report 5047723-1 (Version None)
Quarter: 2006Q3

REPORT INFORMATION
  Report Type: 
  Country: None (occurrence: None)
  Receive Date: 20060711
  Receipt Date: 20060629
  Transmission Date: 20061208
  Serious: Yes (Death, Other)
  Sender: FDA-Public Use
  Company Number: SP-200000531

PATIENT
  Age: 70 Year
  Sex: Male

DRUGS (3)
  1. REMICADE [Suspect]
     Indication: RHEUMATOID ARTHRITIS
     Route: 041
     Dates: start: 20000208
  2. PREDNISONE [Concomitant]
     Route: 065
  3. INDOCIN [Concomitant]
     Route: 065

REACTIONS (1)
  - NON-HODGKIN'S LYMPHOMA [None]
